FAERS Safety Report 11198470 (Version 1)
Quarter: 2015Q2

REPORT INFORMATION
  Report Type: Spontaneous
  Country: US (occurrence: US)
  Receive Date: 20150618
  Receipt Date: 20150618
  Transmission Date: 20150821
  Serious: Yes (Other)
  Sender: FDA-Public Use
  Company Number: US-009507513-1506USA004335

PATIENT
  Sex: Female
  Weight: 57.14 kg

DRUGS (2)
  1. TOPAMAX [Concomitant]
     Active Substance: TOPIRAMATE
  2. NEXPLANON [Suspect]
     Active Substance: ETONOGESTREL
     Indication: CONTRACEPTION
     Dosage: 1 ROD/3 YEARS; IN LEFT ARM
     Route: 059
     Dates: start: 20131223

REACTIONS (3)
  - Fall [Unknown]
  - Seizure [Unknown]
  - Implant site pain [Not Recovered/Not Resolved]
